FAERS Safety Report 5046613-8 (Version None)
Quarter: 2006Q3

REPORT INFORMATION
  Report Type: 
  Country: None (occurrence: None)
  Receive Date: 20060710
  Receipt Date: 20060620
  Transmission Date: 20061208
  Serious: Yes (Hospitalization)
  Sender: FDA-Public Use
  Company Number: JP-AVENTIS-200611908JP

PATIENT
  Age: 75 Year
  Sex: Female
  Weight: 44 kg

DRUGS (11)
  1. TAXOTERE [Suspect]
     Indication: URETHRAL CANCER
     Route: 041
     Dates: start: 20050822, end: 20050822
  2. TAXOTERE [Suspect]
     Route: 041
     Dates: start: 20060116, end: 20060116
  3. TAXOTERE [Suspect]
     Route: 041
     Dates: start: 20060203, end: 20060203
  4. GEMZAR [Concomitant]
     Indication: URETHRAL CANCER
     Route: 041
     Dates: start: 20050822, end: 20050822
  5. GEMZAR [Concomitant]
     Route: 041
     Dates: start: 20060116, end: 20060116
  6. GEMZAR [Concomitant]
     Route: 041
     Dates: start: 20060203, end: 20060203
  7. KYTRIL [Concomitant]
     Indication: URETHRAL CANCER
     Route: 041
     Dates: start: 20060116, end: 20060116
  8. KYTRIL [Concomitant]
     Route: 041
     Dates: start: 20060203, end: 20060203
  9. DECADRON [Concomitant]
     Indication: URETHRAL CANCER
     Route: 041
     Dates: start: 20060116, end: 20060116
  10. DECADRON [Concomitant]
     Route: 041
     Dates: start: 20060203, end: 20060203
  11. RADIOTHERAPY [Concomitant]
     Indication: URETHRAL CANCER
     Dosage: DOSE: 39.6 GY IN TOTAL
     Dates: start: 20060320, end: 20060419

REACTIONS (1)
  - PANCREATITIS ACUTE [None]
